FAERS Safety Report 25059354 (Version 1)
Quarter: 2025Q1

REPORT INFORMATION
  Report Type: Spontaneous
  Country: US (occurrence: None)
  Receive Date: 20250308
  Receipt Date: 20250308
  Transmission Date: 20250409
  Serious: No
  Sender: FDA-CTU
  Company Number: None

PATIENT
  Age: 3 Year
  Sex: Female
  Weight: 16.2 kg

DRUGS (1)
  1. OSELTAMIVIR PHOSPHATE [Suspect]
     Active Substance: OSELTAMIVIR PHOSPHATE
     Indication: Influenza A virus test positive
     Dosage: 1.5 TEASPON(S) VERY 12 HOURS ORAL
     Route: 048
     Dates: start: 20250303, end: 20250303

REACTIONS (1)
  - Vomiting [None]

NARRATIVE: CASE EVENT DATE: 20250303
